FAERS Safety Report 19421223 (Version 1)
Quarter: 2021Q2

REPORT INFORMATION
  Report Type: Spontaneous
  Country: FR (occurrence: FR)
  Receive Date: 20210615
  Receipt Date: 20210615
  Transmission Date: 20210717
  Serious: Yes (Other)
  Sender: FDA-Public Use
  Company Number: FR-PFIZER INC-2021645979

PATIENT
  Age: 66 Year
  Sex: Male
  Weight: 65 kg

DRUGS (4)
  1. ALPRAZOLAM. [Suspect]
     Active Substance: ALPRAZOLAM
     Indication: DEPRESSION
     Dosage: 0,5 MG 3X/DAY
     Route: 048
     Dates: end: 20210428
  2. LEVOTHYROX [Concomitant]
     Active Substance: LEVOTHYROXINE
     Dosage: UNK
  3. THERALENE [Suspect]
     Active Substance: TRIMEPRAZINE
     Indication: SLEEP DISORDER
     Dosage: 1 DF, 1X/DAY
     Route: 048
     Dates: end: 20210428
  4. ALFUZOSINE HYDROCHLORIDE [Concomitant]
     Active Substance: ALFUZOSIN HYDROCHLORIDE
     Dosage: UNK

REACTIONS (2)
  - Pulmonary embolism [Recovered/Resolved]
  - Off label use [Unknown]

NARRATIVE: CASE EVENT DATE: 20210428
